FAERS Safety Report 10396221 (Version 1)
Quarter: 2014Q3

REPORT INFORMATION
  Report Type: Spontaneous
  Country: US (occurrence: US)
  Receive Date: 20140820
  Receipt Date: 20140820
  Transmission Date: 20150326
  Serious: Yes (Hospitalization)
  Sender: FDA-Public Use
  Company Number: US-B.I. PHARMACEUTICALS,INC./RIDGEFIELD-2014-BI-37972BP

PATIENT
  Age: 60 Year
  Sex: Male
  Weight: 145.15 kg

DRUGS (8)
  1. METFORMIN [Concomitant]
     Active Substance: METFORMIN HYDROCHLORIDE
     Dosage: 2000 MG
     Route: 065
  2. DIOVAN [Concomitant]
     Active Substance: VALSARTAN
     Dosage: STRENGTH: 325/25MG; DAILY DOSE: 325/25MG
     Route: 065
  3. PRADAXA [Suspect]
     Active Substance: DABIGATRAN ETEXILATE MESYLATE
     Indication: ATRIAL FIBRILLATION
     Dosage: 300 MG
     Route: 065
     Dates: end: 20111202
  4. POTASSIUM [Concomitant]
     Active Substance: POTASSIUM
     Dosage: 10 MEQ
     Route: 065
  5. BUMEX [Concomitant]
     Active Substance: BUMETANIDE
     Dosage: 1 MG
     Route: 048
  6. PAROXETINE [Concomitant]
     Active Substance: PAROXETINE\PAROXETINE HYDROCHLORIDE
     Dosage: 40 MG
     Route: 065
  7. ZAROXOLYN [Concomitant]
     Active Substance: METOLAZONE
     Dosage: 5 MG
     Route: 065
  8. METOPROLOL ER [Concomitant]
     Active Substance: METOPROLOL SUCCINATE
     Dosage: 200 MG
     Route: 065

REACTIONS (2)
  - Gastrointestinal haemorrhage [Unknown]
  - Haemorrhagic anaemia [Unknown]

NARRATIVE: CASE EVENT DATE: 201112
